FAERS Safety Report 6148726-6 (Version None)
Quarter: 2009Q2

REPORT INFORMATION
  Report Type: 
  Country: None (occurrence: None)
  Receive Date: 20090406
  Receipt Date: 20090406
  Transmission Date: 20091009
  Serious: Yes (Life-Threatening, Other)
  Sender: FDA-Public Use
  Company Number: None

PATIENT
  Age: 12 Year
  Sex: Female
  Weight: 56.6996 kg

DRUGS (2)
  1. CARBATROL [Suspect]
     Indication: EPILEPSY
     Dosage: 600MG 2X DAILY PO
     Route: 048
     Dates: start: 20030901, end: 20061101
  2. CARBATROL [Suspect]
     Indication: GRAND MAL CONVULSION
     Dosage: 600MG 2X DAILY PO
     Route: 048
     Dates: start: 20030901, end: 20061101

REACTIONS (2)
  - DEPRESSION [None]
  - SUICIDAL IDEATION [None]
